FAERS Safety Report 5315579-5 (Version None)
Quarter: 2007Q2

REPORT INFORMATION
  Report Type: 
  Country: None (occurrence: None)
  Receive Date: 20070427
  Receipt Date: 20070418
  Transmission Date: 20071010
  Serious: Yes (Other)
  Sender: FDA-Public Use
  Company Number: FEI2007-0405

PATIENT
  Age: 35 Year
  Sex: Female
  Weight: 85.2762 kg

DRUGS (2)
  1. INTRAUTERINE COPPER CONTRACEPTIVE [Suspect]
     Indication: CONTRACEPTION
     Dosage: INTRA-UTERINE
     Route: 015
     Dates: start: 20070227, end: 20070308
  2. VALTREX [Concomitant]

REACTIONS (1)
  - UTERINE LEIOMYOMA [None]
